FAERS Safety Report 3565376 (Version 3)
Quarter: 2020Q3

REPORT INFORMATION
  Report Type: Spontaneous
  Country: None (occurrence: None)
  Receive Date: 20001102
  Receipt Date: 20001122
  Transmission Date: 20201104
  Serious: Yes (Hospitalization)
  Sender: FDA-Public Use
  Company Number: 2000-111

PATIENT
  Age: 65 Year
  Sex: Female

DRUGS (4)
  1. VASOTEC [Concomitant]
     Active Substance: ENALAPRIL MALEATE
  2. PREMPRO [Concomitant]
     Active Substance: ESTROGENS, CONJUGATED\MEDROXYPROGESTERONE ACETATE
  3. ESTRACE [Suspect]
     Active Substance: ESTRADIOL
  4. PHENAZOPYRIDINE. [Suspect]
     Active Substance: PHENAZOPYRIDINE
     Indication: URETHRAL DISORDER
     Dosage: 1 TAB BID ORAL
     Route: 048
     Dates: start: 20000812, end: 20000821

REACTIONS (13)
  - Influenza like illness [None]
  - Malaise [None]
  - Fatigue [None]
  - Chills [None]
  - Liver function test abnormal [None]
  - Visual impairment [None]
  - Pruritus [None]
  - Chromaturia [None]
  - Cold sweat [None]
  - Pyrexia [None]
  - Dehydration [None]
  - Hypophagia [None]
  - Alopecia [None]

NARRATIVE: CASE EVENT DATE: 20000824
